FAERS Safety Report 7278756-2 (Version None)
Quarter: 2011Q1

REPORT INFORMATION
  Report Type: 
  Country: None (occurrence: None)
  Receive Date: 20110207
  Receipt Date: 20110125
  Transmission Date: 20110831
  Serious: Yes (Hospitalization, Other)
  Sender: FDA-Public Use
  Company Number: US-CELGENEUS-163-21880-10120711

PATIENT
  Sex: Female
  Weight: 97 kg

DRUGS (21)
  1. MELPHALAN [Suspect]
     Route: 065
     Dates: start: 20101210
  2. BENICAR [Concomitant]
     Route: 065
     Dates: end: 20101206
  3. LEXAPRO [Concomitant]
     Indication: DEPRESSION
     Route: 065
  4. ISONIAZID [Concomitant]
     Indication: PROPHYLAXIS
     Route: 065
  5. METFORMIN HCL [Concomitant]
     Route: 065
  6. JANUVIA [Concomitant]
     Indication: HYPERTENSION
     Route: 065
     Dates: start: 20101103
  7. REVLIMID [Suspect]
     Indication: AMYLOIDOSIS
     Route: 048
     Dates: start: 20100909, end: 20101203
  8. LIPITOR [Concomitant]
     Route: 065
  9. SYNTHROID [Concomitant]
     Indication: HYPOTHYROIDISM
     Route: 065
  10. VITAMIIN B-6 [Concomitant]
     Indication: SUPPLEMENTATION THERAPY
     Route: 065
  11. REVLIMID [Suspect]
     Route: 048
     Dates: start: 20101209
  12. LASIX [Concomitant]
     Indication: PROPHYLAXIS
     Dosage: 20-40MG
     Route: 065
  13. FLUCONAZOLE [Concomitant]
     Indication: PROPHYLAXIS
     Route: 065
     Dates: end: 20101202
  14. ASPIRIN [Concomitant]
     Route: 065
  15. POTASSIUM CHLORIDE [Concomitant]
     Indication: SUPPLEMENTATION THERAPY
     Route: 065
  16. DEXAMETHASONE [Suspect]
     Indication: AMYLOIDOSIS
     Route: 065
     Dates: start: 20100909, end: 20101203
  17. SYMBICORT [Concomitant]
     Indication: ASTHMA
     Route: 055
  18. ALBUTEROL [Concomitant]
     Indication: ASTHMA
     Route: 055
  19. MELPHALAN [Suspect]
     Indication: AMYLOIDOSIS
     Route: 065
     Dates: start: 20100909, end: 20101203
  20. DEXAMETHASONE [Suspect]
     Route: 065
     Dates: start: 20101210
  21. COREG [Concomitant]
     Indication: PROPHYLAXIS
     Route: 065
     Dates: end: 20101202

REACTIONS (2)
  - ATRIAL FIBRILLATION [None]
  - ATRIAL THROMBOSIS [None]
